FAERS Safety Report 10264432 (Version 1)
Quarter: 2014Q2

REPORT INFORMATION
  Report Type: Spontaneous
  Country: IL (occurrence: IL)
  Receive Date: 20140627
  Receipt Date: 20140627
  Transmission Date: 20141212
  Serious: Yes (Hospitalization)
  Sender: FDA-Public Use
  Company Number: IL-ELI_LILLY_AND_COMPANY-IL201406007572

PATIENT
  Age: 76 Year
  Sex: Male

DRUGS (2)
  1. EFFIENT [Suspect]
     Indication: PRODUCT USED FOR UNKNOWN INDICATION
     Dosage: 5 MG, UNK
     Route: 065
     Dates: start: 201303
  2. ASPIRIN [Concomitant]
     Dosage: UNK

REACTIONS (1)
  - Thrombosis in device [Unknown]
